FAERS Safety Report 14614970 (Version 4)
Quarter: 2018Q3

REPORT INFORMATION
  Report Type: Spontaneous
  Country: US (occurrence: US)
  Receive Date: 20180308
  Receipt Date: 20180817
  Transmission Date: 20181010
  Serious: Yes (Other)
  Sender: FDA-Public Use
  Company Number: US-PFIZER INC-2018092992

PATIENT
  Age: 72 Year
  Sex: Female

DRUGS (1)
  1. XELJANZ [Suspect]
     Active Substance: TOFACITINIB CITRATE
     Dosage: 5 MG, 1X/DAY

REACTIONS (6)
  - Influenza [Unknown]
  - Pain in extremity [Unknown]
  - Foot fracture [Unknown]
  - Intentional product use issue [Unknown]
  - Pneumonia [Unknown]
  - Nausea [Unknown]
